FAERS Safety Report 7729787-7 (Version None)
Quarter: 2011Q3

REPORT INFORMATION
  Report Type: 
  Country: None (occurrence: None)
  Receive Date: 20110906
  Receipt Date: 20110822
  Transmission Date: 20111222
  Serious: Yes (Hospitalization)
  Sender: FDA-Public Use
  Company Number: TW-SANOFI-AVENTIS-2011SA055385

PATIENT
  Age: 46 Year
  Sex: Female

DRUGS (2)
  1. ZOLPIDEM [Suspect]
     Dosage: IN DIVIDED DOSES
     Route: 065
  2. ZOLPIDEM [Suspect]
     Dosage: TAKEN FR A PERIOD OF 10 YEARS
     Route: 065

REACTIONS (12)
  - PSYCHOTIC BEHAVIOUR [None]
  - SINUS TACHYCARDIA [None]
  - DELIRIUM [None]
  - DRUG DEPENDENCE [None]
  - DYSKINESIA [None]
  - PROTRUSION TONGUE [None]
  - HALLUCINATION, VISUAL [None]
  - DYSARTHRIA [None]
  - OVERDOSE [None]
  - MUSCLE TWITCHING [None]
  - DRUG WITHDRAWAL SYNDROME [None]
  - CONVULSION [None]
